FAERS Safety Report 8894124 (Version 2)
Quarter: 2012Q4

REPORT INFORMATION
  Report Type: 
  Country: FR (occurrence: FR)
  Receive Date: 20121108
  Receipt Date: 20121119
  Transmission Date: 20130627
  Serious: Yes (Death, Hospitalization)
  Sender: FDA-Public Use
  Company Number: FR-PFIZER INC-2012277582

PATIENT
  Age: 90 Year
  Sex: Female

DRUGS (11)
  1. CORDARONE [Suspect]
     Indication: ATRIAL FIBRILLATION
     Dosage: UNK
     Route: 048
     Dates: start: 201209, end: 20120927
  2. PREVISCAN [Suspect]
     Indication: ATRIAL FIBRILLATION
     Dosage: UNK
     Route: 048
     Dates: start: 20120924, end: 20120926
  3. HEPARIN [Concomitant]
     Dosage: UNK
     Dates: start: 201209, end: 20120924
  4. PREDNISONE [Concomitant]
     Dosage: UNK
  5. LASILIX [Concomitant]
     Dosage: UNK
  6. SERESTA [Concomitant]
     Dosage: UNK
  7. TARDYFERON [Concomitant]
     Dosage: UNK
  8. EUPANTOL [Concomitant]
     Dosage: UNK
  9. APROVEL [Concomitant]
     Dosage: UNK
  10. ROCEPHINE [Concomitant]
     Indication: ESCHERICHIA SEPSIS
     Dosage: UNK
     Dates: start: 20120914
  11. OFLOCET [Concomitant]
     Indication: ESCHERICHIA SEPSIS
     Dosage: UNK
     Dates: start: 20120914

REACTIONS (7)
  - Cardiac failure [Fatal]
  - Hypernatraemia [Fatal]
  - Prerenal failure [Fatal]
  - Hepatocellular injury [Recovering/Resolving]
  - International normalised ratio increased [Recovering/Resolving]
  - Hepatic encephalopathy [Unknown]
  - Haematuria [Unknown]
